FAERS Safety Report 26007283 (Version 1)
Quarter: 2025Q4

REPORT INFORMATION
  Report Type: Spontaneous
  Country: PR (occurrence: PR)
  Receive Date: 20251106
  Receipt Date: 20251106
  Transmission Date: 20260117
  Serious: Yes (Other)
  Sender: BRISTOL-MYERS SQUIBB COMPANY
  Company Number: PR-BRISTOL-MYERS SQUIBB COMPANY-2025-150717

PATIENT
  Sex: Male

DRUGS (1)
  1. OPDIVO QVANTIG [Suspect]
     Active Substance: HYALURONIDASE-NVHY\NIVOLUMAB
     Indication: Product used for unknown indication
     Route: 058
     Dates: end: 20251003

REACTIONS (2)
  - Pulmonary fibrosis [Unknown]
  - Illness [Unknown]
